FAERS Safety Report 20847235 (Version 1)
Quarter: 2022Q2

REPORT INFORMATION
  Report Type: Spontaneous
  Country: US (occurrence: US)
  Receive Date: 20220519
  Receipt Date: 20220519
  Transmission Date: 20220721
  Serious: No
  Sender: FDA-Public Use
  Company Number: US-TEVA-2022-US-2037411

PATIENT
  Sex: Male

DRUGS (1)
  1. NEFAZODONE [Suspect]
     Active Substance: NEFAZODONE
     Dosage: 400 MILLIGRAM DAILY;
     Route: 065

REACTIONS (2)
  - Therapeutic product effect incomplete [Unknown]
  - Sleep disorder [Unknown]
